FAERS Safety Report 23156742 (Version 1)
Quarter: 2023Q4

REPORT INFORMATION
  Report Type: Spontaneous
  Country: CN (occurrence: CN)
  Receive Date: 20231107
  Receipt Date: 20231107
  Transmission Date: 20240109
  Serious: Yes (Hospitalization, Other)
  Sender: FDA-Public Use
  Company Number: CN-HALEON-CNCH2023APC052111

PATIENT

DRUGS (2)
  1. IBUPROFEN [Suspect]
     Active Substance: IBUPROFEN
     Indication: Pyrexia
     Dosage: 1 DF, QD
     Route: 048
     Dates: start: 20230929, end: 20230929
  2. IBUPROFEN [Suspect]
     Active Substance: IBUPROFEN
     Indication: Symptomatic treatment

REACTIONS (4)
  - Liver injury [Recovering/Resolving]
  - Decreased appetite [Recovering/Resolving]
  - Nausea [Recovered/Resolved]
  - Vomiting [Recovered/Resolved]

NARRATIVE: CASE EVENT DATE: 20230929
